FAERS Safety Report 5320848-9 (Version None)
Quarter: 2007Q2

REPORT INFORMATION
  Report Type: 
  Country: None (occurrence: None)
  Receive Date: 20070502
  Receipt Date: 20070419
  Transmission Date: 20071010
  Serious: Yes (Hospitalization)
  Sender: FDA-Public Use
  Company Number: FABR-11974

PATIENT
  Age: 45 Year
  Sex: Male
  Weight: 67.7 kg

DRUGS (14)
  1. FABRAZYME [Suspect]
     Indication: FABRY'S DISEASE
     Dosage: 35 MG QWK IV
     Route: 042
     Dates: start: 20040213
  2. FABRAZYME [Suspect]
     Indication: FABRY'S DISEASE
     Dosage: 1 MG/KG Q2WKS IV
     Route: 042
     Dates: start: 20030331
  3. ATIVAN. MFR: WYETH LABORATORIES, INCORPORATED [Concomitant]
  4. COMPAZINE. MFR: SMITH KLINE + FRENCH LABORATORIES [Concomitant]
  5. CYMBALTA [Concomitant]
  6. DARVOCET-N 100 [Concomitant]
  7. DEPAKOTE [Concomitant]
  8. EMLA CREAM. MFR: ASTRA PHARMACEUTICAL PRODUCTS, INC. [Concomitant]
  9. EPOGEN. MFR: AMGEN [Concomitant]
  10. LASIX. MFR: HOECHST PHARMACEUTICALS, INCORPORATED [Concomitant]
  11. NEPHROVITE [Concomitant]
  12. PHOSLO. MFR: BRAINTREE [Concomitant]
  13. REGLAN. MFR: ALKALOID [Concomitant]
  14. THIAMINE [Concomitant]

REACTIONS (5)
  - AMNESIA [None]
  - CONVULSION [None]
  - FAECAL INCONTINENCE [None]
  - TREMOR [None]
  - URINARY INCONTINENCE [None]
